FAERS Safety Report 9040972 (Version 1)
Quarter: 2013Q1

REPORT INFORMATION
  Report Type: Spontaneous
  Country: US (occurrence: None)
  Receive Date: 20130123
  Receipt Date: 20130123
  Transmission Date: 20140127
  Serious: Yes (Hospitalization)
  Sender: FDA-Public Use
  Company Number: None

PATIENT
  Age: 72 Year
  Sex: Female
  Weight: 97.07 kg

DRUGS (6)
  1. CLINDAMYCIN [Suspect]
     Indication: LOCALISED INFECTION
     Dosage: 1 CAPSULE  EVERY 6 HRS X7DAYS  PO
     Route: 048
     Dates: start: 20121101, end: 20121108
  2. SULFAMETH/TRIMETHOPRIM [Suspect]
     Indication: LOCALISED INFECTION
     Dosage: 1 TABLET  TWICE DAILY X 7 DAYS  PO
     Route: 048
     Dates: start: 20121101, end: 20121108
  3. AQUACEL AG [Concomitant]
  4. BENAZEPRIL [Concomitant]
  5. COUMADIN [Concomitant]
  6. LIPITOR [Concomitant]

REACTIONS (3)
  - Renal failure acute [None]
  - Clostridium test positive [None]
  - Drug ineffective [None]
